FAERS Safety Report 7015173-4 (Version None)
Quarter: 2010Q3

REPORT INFORMATION
  Report Type: 
  Country: None (occurrence: None)
  Receive Date: 20100927
  Receipt Date: 20100708
  Transmission Date: 20110219
  Serious: No
  Sender: FDA-Public Use
  Company Number: US-ASTRAZENECA-2009UW18454

PATIENT
  Age: 83 Year
  Sex: Female

DRUGS (11)
  1. ARIMIDEX [Suspect]
     Route: 048
  2. NEXIUM [Suspect]
     Route: 048
  3. AGRANOX [Concomitant]
  4. NORVASC [Concomitant]
  5. LEXAPRO [Concomitant]
  6. VITAMIN D [Concomitant]
  7. RECLAST [Concomitant]
  8. VITAMIN E [Concomitant]
  9. CITRACAL [Concomitant]
  10. CENTRUM SILVER [Concomitant]
  11. GLUCOSAMINE [Concomitant]

REACTIONS (5)
  - ARTHRALGIA [None]
  - ARTHRITIS [None]
  - CONTUSION [None]
  - FALL [None]
  - TRANSIENT ISCHAEMIC ATTACK [None]
